FAERS Safety Report 7630214-9 (Version None)
Quarter: 2011Q3

REPORT INFORMATION
  Report Type: 
  Country: None (occurrence: None)
  Receive Date: 20110722
  Receipt Date: 20110713
  Transmission Date: 20111222
  Serious: Yes (Other)
  Sender: FDA-Public Use
  Company Number: PHHY2011CH62955

PATIENT
  Age: 44 Year
  Sex: Female

DRUGS (2)
  1. TYSABRI [Concomitant]
     Dosage: UNK UKN, UNK
     Dates: start: 20110401
  2. GILENYA [Suspect]
     Dosage: UNK UKN, UNK
     Dates: start: 20110704, end: 20110716

REACTIONS (2)
  - DIZZINESS [None]
  - CHEST DISCOMFORT [None]
